FAERS Safety Report 5918202-1 (Version None)
Quarter: 2008Q4

REPORT INFORMATION
  Report Type: 
  Country: None (occurrence: None)
  Receive Date: 20081014
  Receipt Date: 20081006
  Transmission Date: 20090506
  Serious: Yes (Other)
  Sender: FDA-Public Use
  Company Number: NL-ABBOTT-08P-114-0481389-00

PATIENT

DRUGS (1)
  1. HUMIRA [Suspect]
     Indication: UVEITIS
     Route: 058

REACTIONS (1)
  - PULMONARY EMBOLISM [None]
